FAERS Safety Report 24696821 (Version 3)
Quarter: 2025Q1

REPORT INFORMATION
  Report Type: Spontaneous
  Country: IN (occurrence: IN)
  Receive Date: 20241204
  Receipt Date: 20250303
  Transmission Date: 20250409
  Serious: Yes (Death, Hospitalization)
  Sender: PFIZER
  Company Number: IN-PFIZER INC-PV202400156926

PATIENT
  Age: 52 Year
  Sex: Female

DRUGS (2)
  1. CRIZOTINIB [Suspect]
     Active Substance: CRIZOTINIB
     Dosage: 250 MG, 2X/DAY
     Route: 048
  2. CRIZOTINIB [Suspect]
     Active Substance: CRIZOTINIB
     Route: 048
     Dates: start: 20241030, end: 20250121

REACTIONS (3)
  - Death [Fatal]
  - Cough [Unknown]
  - Asthma [Unknown]
